FAERS Safety Report 25592080 (Version 1)
Quarter: 2025Q3

REPORT INFORMATION
  Report Type: Spontaneous
  Country: CN (occurrence: CN)
  Receive Date: 20250722
  Receipt Date: 20250722
  Transmission Date: 20251020
  Serious: Yes (Other)
  Sender: JOHNSON AND JOHNSON
  Company Number: CN-JNJFOC-20250726602

PATIENT
  Age: 81 Year
  Sex: Male
  Weight: 89.6 kg

DRUGS (2)
  1. XARELTO [Suspect]
     Active Substance: RIVAROXABAN
     Indication: Atrial fibrillation
     Dosage: 15 MG, QD
     Route: 048
     Dates: start: 20250709, end: 20250712
  2. METHYLPREDNISOLONE SODIUM SUCCINATE [Concomitant]
     Active Substance: METHYLPREDNISOLONE SODIUM SUCCINATE
     Indication: Antiinflammatory therapy
     Dosage: 40 MG, QD
     Route: 041
     Dates: start: 20250709, end: 20250713

REACTIONS (2)
  - Haematochezia [Recovering/Resolving]
  - Gastrointestinal injury [Recovering/Resolving]

NARRATIVE: CASE EVENT DATE: 20250712
